FAERS Safety Report 4902391-1 (Version None)
Quarter: 2006Q1

REPORT INFORMATION
  Report Type: 
  Country: None (occurrence: None)
  Receive Date: 20060203
  Receipt Date: 20060203
  Transmission Date: 20060701
  Serious: Yes (Hospitalization, Other)
  Sender: FDA-Public Use
  Company Number: None

PATIENT
  Age: 46 Year
  Sex: Female
  Weight: 116.14 kg

DRUGS (10)
  1. CISPLATIN [Suspect]
     Indication: TONGUE NEOPLASM MALIGNANT STAGE UNSPECIFIED
     Dosage: 217 MG/DAY IV
     Route: 042
     Dates: start: 20020816, end: 20020821
  2. FLUOROURACIL [Suspect]
     Indication: TONGUE NEOPLASM MALIGNANT STAGE UNSPECIFIED
     Dosage: 2170 MG/DAY IV
     Route: 042
     Dates: start: 20020816, end: 20020821
  3. LISINOPRIL [Concomitant]
  4. NICOTINE [Concomitant]
  5. HYDROCODONE BITARTRATE + ACETAMINOPHEN [Concomitant]
  6. CHLORHEXIDINE [Concomitant]
  7. METFORMIN HCL [Concomitant]
  8. FEXOFENADINE HCL [Concomitant]
  9. GLIMEPIRIDE [Concomitant]
  10. ATORVASTATIN CALCIUM [Concomitant]

REACTIONS (1)
  - BLOOD CREATININE INCREASED [None]
